FAERS Safety Report 14296863 (Version 12)
Quarter: 2022Q2

REPORT INFORMATION
  Report Type: Spontaneous
  Country: DE (occurrence: DE)
  Receive Date: 20171218
  Receipt Date: 20220520
  Transmission Date: 20220720
  Serious: Yes (Death, Life-Threatening, Other)
  Sender: FDA-Public Use
  Company Number: None

PATIENT
  Age: 47 Year
  Sex: Male

DRUGS (26)
  1. CISPLATIN [Suspect]
     Active Substance: CISPLATIN
     Indication: Non-small cell lung cancer stage IIIA
     Dosage: UNK UNK, CYCLE
     Route: 065
     Dates: start: 201502
  2. CISPLATIN [Suspect]
     Active Substance: CISPLATIN
     Indication: Squamous cell carcinoma
     Dosage: UNK
  3. CISPLATIN [Suspect]
     Active Substance: CISPLATIN
     Indication: Non-small cell lung cancer
  4. CISPLATIN [Suspect]
     Active Substance: CISPLATIN
     Indication: Chemotherapy
  5. CISPLATIN [Suspect]
     Active Substance: CISPLATIN
     Indication: Lung squamous cell carcinoma stage III
  6. GEMCITABINE [Suspect]
     Active Substance: GEMCITABINE
     Indication: Non-small cell lung cancer
     Dosage: UNK UNK, CYCLE (3RD AND 4TH LINE THERAPY)
  7. DOCETAXEL [Suspect]
     Active Substance: DOCETAXEL
     Indication: Antiretroviral therapy
     Dosage: UNK UNK, CYCLE ((3RD AND 4TH LINE THERAPY))
     Route: 065
  8. DOCETAXEL [Suspect]
     Active Substance: DOCETAXEL
     Indication: Non-small cell lung cancer
  9. VINORELBINE [Suspect]
     Active Substance: VINORELBINE TARTRATE
     Indication: Chemotherapy
     Dosage: UNK UNK, CYCLE
     Route: 065
     Dates: start: 201502
  10. VINORELBINE [Suspect]
     Active Substance: VINORELBINE TARTRATE
     Indication: Non-small cell lung cancer stage IIIA
     Dosage: UNK
     Route: 065
     Dates: start: 201502
  11. VINORELBINE [Suspect]
     Active Substance: VINORELBINE TARTRATE
     Indication: Non-small cell lung cancer
  12. VINORELBINE [Suspect]
     Active Substance: VINORELBINE TARTRATE
     Indication: Lung squamous cell carcinoma stage III
  13. DARUNAVIR [Suspect]
     Active Substance: DARUNAVIR
     Indication: HIV infection
     Dosage: UNK (ANTIRETROVIRAL THERAPY)
     Route: 065
  14. DARUNAVIR [Suspect]
     Active Substance: DARUNAVIR
     Indication: Non-small cell lung cancer
  15. DARUNAVIR [Suspect]
     Active Substance: DARUNAVIR
     Indication: Antiretroviral therapy
  16. RITONAVIR [Suspect]
     Active Substance: RITONAVIR
     Indication: HIV infection
     Dosage: UNK (ANTIRETROVIRAL THERAPY)
     Route: 065
  17. RITONAVIR [Suspect]
     Active Substance: RITONAVIR
     Indication: Antiretroviral therapy
  18. RITONAVIR [Suspect]
     Active Substance: RITONAVIR
     Indication: Non-small cell lung cancer
  19. NIVOLUMAB [Suspect]
     Active Substance: NIVOLUMAB
     Indication: Metastases to lymph nodes
     Dosage: 3 MILLIGRAM/KILOGRAM, CYCLE
     Dates: start: 201603, end: 201603
  20. NIVOLUMAB [Suspect]
     Active Substance: NIVOLUMAB
     Indication: Non-small cell lung cancer
  21. NIVOLUMAB [Suspect]
     Active Substance: NIVOLUMAB
     Indication: Lung squamous cell carcinoma stage III
  22. DOLUTEGRAVIR [Concomitant]
     Active Substance: DOLUTEGRAVIR
     Indication: HIV infection
     Dosage: UNK UNK, CYCLE (ANTIRETROVIRAL THERAPY)
  23. DOLUTEGRAVIR [Concomitant]
     Active Substance: DOLUTEGRAVIR
     Indication: Non-small cell lung cancer
     Dosage: UNK (ANTIRETROVIRAL THERAPY)
  24. DOLUTEGRAVIR [Concomitant]
     Active Substance: DOLUTEGRAVIR
     Indication: Antiretroviral therapy
  25. DOLUTEGRAVIR [Concomitant]
     Active Substance: DOLUTEGRAVIR
     Indication: HIV test positive
  26. DARUNAVIR\RITONAVIR [Concomitant]
     Active Substance: DARUNAVIR\RITONAVIR
     Indication: HIV test positive
     Dosage: UNK

REACTIONS (7)
  - Non-small cell lung cancer [Fatal]
  - Treatment failure [Fatal]
  - Enteritis [Unknown]
  - Neutropenic sepsis [Unknown]
  - Drug ineffective [Unknown]
  - CD4 lymphocytes decreased [Unknown]
  - Bone marrow disorder [Unknown]

NARRATIVE: CASE EVENT DATE: 20150101
